FAERS Safety Report 15611299 (Version 1)
Quarter: 2018Q4

REPORT INFORMATION
  Report Type: Spontaneous
  Country: GB (occurrence: VE)
  Receive Date: 20181113
  Receipt Date: 20181113
  Transmission Date: 20190205
  Serious: Yes (Life-Threatening, Hospitalization, Other)
  Sender: FDA-Public Use
  Company Number: GB-ACCORD-091887

PATIENT
  Age: 7 Year
  Sex: Male

DRUGS (1)
  1. METHOTREXATE. [Suspect]
     Active Substance: METHOTREXATE
     Indication: ACUTE LYMPHOCYTIC LEUKAEMIA RECURRENT
     Dosage: 4 G/M2, QCY, THIRD WEEK WITH METHOTREXATE
     Route: 058

REACTIONS (9)
  - Pancytopenia [Unknown]
  - Hot flush [Recovering/Resolving]
  - Inflammation [Recovering/Resolving]
  - Pyrexia [Recovering/Resolving]
  - Bacteraemia [Recovering/Resolving]
  - Chills [Recovering/Resolving]
  - Swelling [Recovering/Resolving]
  - Red blood cell sedimentation rate increased [Recovering/Resolving]
  - Sepsis [Recovering/Resolving]
